FAERS Safety Report 22264163 (Version 3)
Quarter: 2023Q2

REPORT INFORMATION
  Report Type: Spontaneous
  Country: US (occurrence: US)
  Receive Date: 20230428
  Receipt Date: 20230629
  Transmission Date: 20230721
  Serious: No
  Sender: FDA-Public Use
  Company Number: US-VERTEX PHARMACEUTICALS-2023-006043

PATIENT

DRUGS (1)
  1. TRIKAFTA [Suspect]
     Active Substance: ELEXACAFTOR\IVACAFTOR\TEZACAFTOR
     Indication: Cystic fibrosis
     Dosage: UNKNOWN DOSE
     Route: 048
     Dates: end: 2023

REACTIONS (4)
  - Mental disorder [Recovering/Resolving]
  - Depressed mood [Unknown]
  - Breath sounds abnormal [Unknown]
  - Acne [Unknown]
